FAERS Safety Report 9689486 (Version 3)
Quarter: 2018Q2

REPORT INFORMATION
  Report Type: Report from Study
  Country: None (occurrence: CA)
  Receive Date: 20131114
  Receipt Date: 20180401
  Transmission Date: 20180711
  Serious: Yes (Other)
  Sender: FDA-Public Use
  Company Number: CA-ABBVIE-13P-028-1168499-00

PATIENT
  Age: 49 Year
  Sex: Female
  Weight: 58.11 kg

DRUGS (2)
  1. HUMIRA [Suspect]
     Active Substance: ADALIMUMAB
     Indication: INTESTINAL FISTULA
     Route: 058
  2. HUMIRA [Suspect]
     Active Substance: ADALIMUMAB
     Indication: CROHN^S DISEASE
     Route: 058
     Dates: start: 20120418, end: 20131002

REACTIONS (6)
  - Hypophagia [Recovered/Resolved]
  - Abdominal adhesions [Recovering/Resolving]
  - Large intestinal stenosis [Not Recovered/Not Resolved]
  - Intestinal obstruction [Unknown]
  - Melanocytic naevus [Not Recovered/Not Resolved]
  - Fibrosing colonopathy [Unknown]

NARRATIVE: CASE EVENT DATE: 201306
